FAERS Safety Report 7014896-0 (Version None)
Quarter: 2010Q3

REPORT INFORMATION
  Report Type: 
  Country: None (occurrence: None)
  Receive Date: 20100927
  Receipt Date: 20100115
  Transmission Date: 20110219
  Serious: No
  Sender: FDA-Public Use
  Company Number: US-ASTRAZENECA-2009SE18263

PATIENT
  Age: 68 Year
  Sex: Female

DRUGS (3)
  1. ARIMIDEX [Suspect]
     Indication: BREAST CANCER
     Route: 048
     Dates: start: 20090429, end: 20090606
  2. ARIMIDEX [Suspect]
     Route: 048
     Dates: start: 20090823, end: 20090922
  3. SYNTHROID [Concomitant]

REACTIONS (3)
  - DYSGEUSIA [None]
  - GLOSSODYNIA [None]
  - PAIN IN JAW [None]
